FAERS Safety Report 9524278 (Version 1)
Quarter: 2013Q3

REPORT INFORMATION
  Report Type: Spontaneous
  Country: US (occurrence: None)
  Receive Date: 20130912
  Receipt Date: 20130912
  Transmission Date: 20140515
  Serious: No
  Sender: FDA-Public Use
  Company Number: None

PATIENT
  Age: 59 None
  Sex: Male

DRUGS (6)
  1. ANDRODERM [Suspect]
     Indication: HYPOGONADISM
     Dates: start: 20130805, end: 20130828
  2. HYDROCORTISONE [Concomitant]
  3. FORTESTA [Concomitant]
  4. NAPRAXEN [Concomitant]
  5. CENTRUM [Concomitant]
  6. CALCIUM [Concomitant]

REACTIONS (4)
  - Application site erythema [None]
  - Application site swelling [None]
  - Application site vesicles [None]
  - Impaired healing [None]
